FAERS Safety Report 15708182 (Version 4)
Quarter: 2019Q2

REPORT INFORMATION
  Report Type: Spontaneous
  Country: JP (occurrence: JP)
  Receive Date: 20181211
  Receipt Date: 20190408
  Transmission Date: 20190711
  Serious: Yes (Death, Life-Threatening, Hospitalization, Disabling)
  Sender: FDA-Public Use
  Company Number: JP-ASTELLAS-2018JP021854AA

PATIENT
  Age: 77 Year
  Sex: Female
  Weight: 31 kg

DRUGS (14)
  1. CARBOCISTEINE [Concomitant]
     Active Substance: CARBOCYSTEINE
     Indication: RHEUMATOID LUNG
     Route: 048
     Dates: start: 20110908, end: 20181114
  2. LANSOPRAZOLE. [Concomitant]
     Active Substance: LANSOPRAZOLE
     Indication: PRODUCT USED FOR UNKNOWN INDICATION
     Dosage: UNK UNK, UNKNOWN FREQ.
     Route: 065
  3. PROGRAF [Suspect]
     Active Substance: TACROLIMUS\TACROLIMUS ANHYDROUS
     Dosage: 1.5 MG, UNKNOWN FREQ., UNDER FASTING
     Route: 048
     Dates: start: 20180726, end: 20180917
  4. PREDONINE [Suspect]
     Active Substance: PREDNISOLONE
     Indication: RHEUMATOID ARTHRITIS
     Route: 048
     Dates: start: 20170921
  5. CANDESARTAN. [Concomitant]
     Active Substance: CANDESARTAN
     Indication: HYPERTENSION
     Route: 048
     Dates: start: 20180918, end: 20181114
  6. TACROLIMUS. [Suspect]
     Active Substance: TACROLIMUS
     Indication: RHEUMATOID ARTHRITIS
     Route: 048
     Dates: start: 20180918, end: 20181116
  7. PREDONINE [Suspect]
     Active Substance: PREDNISOLONE
     Route: 048
     Dates: start: 20181114, end: 20181115
  8. ERYTHROMYCIN                       /00020902/ [Concomitant]
     Active Substance: ERYTHROMYCIN
     Indication: RHEUMATOID LUNG
     Route: 048
     Dates: start: 20111027, end: 20181114
  9. RABEPRAZOLE [Concomitant]
     Active Substance: RABEPRAZOLE
     Indication: PROPHYLAXIS AGAINST GASTROINTESTINAL ULCER
     Route: 048
     Dates: start: 20180918, end: 20181114
  10. PROGRAF [Suspect]
     Active Substance: TACROLIMUS\TACROLIMUS ANHYDROUS
     Indication: RHEUMATOID ARTHRITIS
     Dosage: 1.5 MG, UNKNOWN FREQ., AFTER MEAL
     Route: 048
  11. PREDNISOLONE. [Suspect]
     Active Substance: PREDNISOLONE
     Indication: PRODUCT USED FOR UNKNOWN INDICATION
     Dosage: UNK UNK, UNKNOWN FREQ.
     Route: 048
  12. PREDONINE [Suspect]
     Active Substance: PREDNISOLONE
     Indication: RHEUMATOID LUNG
     Route: 048
     Dates: start: 20181114, end: 20181115
  13. ZETIA [Concomitant]
     Active Substance: EZETIMIBE
     Indication: HYPERLIPIDAEMIA
     Route: 048
     Dates: start: 20121011, end: 20181114
  14. BAKTAR [Concomitant]
     Active Substance: SULFAMETHOXAZOLE\TRIMETHOPRIM
     Indication: RHEUMATOID LUNG
     Route: 048
     Dates: start: 20110827, end: 20181114

REACTIONS (8)
  - Pneumonia [Not Recovered/Not Resolved]
  - Hyperglycaemia [Recovering/Resolving]
  - Stenotrophomonas infection [Not Recovered/Not Resolved]
  - Platelet count decreased [Not Recovered/Not Resolved]
  - Pulmonary embolism [Fatal]
  - Thrombotic microangiopathy [Not Recovered/Not Resolved]
  - Hyperkalaemia [Recovering/Resolving]
  - Renal impairment [Not Recovered/Not Resolved]

NARRATIVE: CASE EVENT DATE: 20181112
